FAERS Safety Report 6308875-6 (Version None)
Quarter: 2009Q3

REPORT INFORMATION
  Report Type: 
  Country: None (occurrence: None)
  Receive Date: 20090813
  Receipt Date: 20090109
  Transmission Date: 20100115
  Serious: No
  Sender: FDA-Public Use
  Company Number: US-ALLERGAN-0900242US

PATIENT
  Age: 69 Year
  Sex: Male

DRUGS (4)
  1. COMBIGAN [Suspect]
     Indication: GLAUCOMA
     Dosage: UNK, UNKNOWN
     Route: 047
     Dates: start: 20081101
  2. METFORMIN HCL [Concomitant]
     Dosage: 1000 MG, BID
  3. TYLENOL W/ CODEINE NO. 3 [Concomitant]
     Indication: THYROID DISORDER
     Dosage: 15 UG, QD
  4. TESTOSTERONE [Concomitant]
     Dosage: 0.25 MG, QD

REACTIONS (1)
  - SEXUAL DYSFUNCTION [None]
